FAERS Safety Report 8934175 (Version 1)
Quarter: 2012Q4

REPORT INFORMATION
  Report Type: 
  Country: US (occurrence: US)
  Receive Date: 20121129
  Receipt Date: 20121129
  Transmission Date: 20130627
  Serious: No
  Sender: FDA-Public Use
  Company Number: US-GLAXOSMITHKLINE-A0988786A

PATIENT
  Age: 39 Year
  Sex: Male

DRUGS (3)
  1. BUPROPION HYDROCHLORIDE [Suspect]
     Indication: DEPRESSION
     Dosage: 150MG Per day
     Route: 048
     Dates: start: 20120801
  2. UNSPECIFIED INGREDIENT [Suspect]
  3. XANAX [Concomitant]

REACTIONS (2)
  - Dizziness [Recovering/Resolving]
  - Energy increased [Unknown]
